APPROVED DRUG PRODUCT: PROGESTERONE
Active Ingredient: PROGESTERONE
Strength: 200MG
Dosage Form/Route: CAPSULE;ORAL
Application: A200900 | Product #002 | TE Code: AB
Applicant: BIONPHARMA INC
Approved: Aug 16, 2013 | RLD: No | RS: No | Type: RX